FAERS Safety Report 8847669 (Version 1)
Quarter: 2012Q4

REPORT INFORMATION
  Report Type: Report from Study
  Country: US (occurrence: US)
  Receive Date: 20121018
  Receipt Date: 20121018
  Transmission Date: 20130627
  Serious: No
  Sender: FDA-Public Use
  Company Number: US-ROCHE-1144103

PATIENT
  Age: 56 Year
  Sex: Female
  Weight: 148.46 kg

DRUGS (7)
  1. OMALIZUMAB [Suspect]
     Indication: ASTHMA
     Route: 058
     Dates: start: 20120807, end: 20120808
  2. SYMBICORT [Concomitant]
     Dosage: 160/4.5
     Route: 065
  3. ACCOLATE [Concomitant]
     Route: 048
  4. VENTOLIN [Concomitant]
     Route: 065
  5. ALBUTEROL [Concomitant]
     Route: 065
  6. VITAMIN D [Concomitant]
  7. VITAMIN B12 [Concomitant]
     Route: 065

REACTIONS (9)
  - Dyspnoea [Recovered/Resolved]
  - Wheezing [Recovered/Resolved]
  - Dysphonia [Recovered/Resolved]
  - Chest discomfort [Recovered/Resolved]
  - Swollen tongue [Not Recovered/Not Resolved]
  - Pruritus [Recovered/Resolved]
  - Arthralgia [Not Recovered/Not Resolved]
  - Ear pain [Not Recovered/Not Resolved]
  - Pain in extremity [Recovered/Resolved]
